FAERS Safety Report 9202094 (Version 4)
Quarter: 2013Q3

REPORT INFORMATION
  Report Type: Spontaneous
  Country: US (occurrence: US)
  Receive Date: 20130401
  Receipt Date: 20130731
  Transmission Date: 20140515
  Serious: Yes (Hospitalization)
  Sender: FDA-Public Use
  Company Number: US-GLAXOSMITHKLINE-A0774611A

PATIENT
  Age: 63 Year
  Sex: Female

DRUGS (9)
  1. PAXIL CR [Suspect]
     Indication: BIPOLAR DISORDER
     Dosage: 25MG PER DAY
     Route: 048
     Dates: start: 1991
  2. VALTREX [Suspect]
     Indication: HERPES ZOSTER
     Dosage: 1G TWICE PER DAY
     Route: 048
     Dates: start: 1982
  3. SEROQUEL [Suspect]
     Indication: BIPOLAR DISORDER
     Route: 065
     Dates: start: 2004
  4. ACYCLOVIR [Suspect]
     Indication: GENITAL HERPES
     Dates: start: 1978
  5. FLAXSEED OIL [Concomitant]
     Dosage: 1000MG PER DAY
  6. KLONOPIN [Concomitant]
     Dosage: .5MG TWICE PER DAY
  7. COZAAR [Concomitant]
  8. THYROLAR [Concomitant]
  9. LITHIUM [Concomitant]

REACTIONS (15)
  - Pneumonia [Recovering/Resolving]
  - Drug dependence [Unknown]
  - Cataract [Unknown]
  - Hypomania [Unknown]
  - Bronchitis [Recovering/Resolving]
  - Pyrexia [Recovering/Resolving]
  - Emotional disorder [Unknown]
  - Malaise [Unknown]
  - Insomnia [Unknown]
  - Drug ineffective [Not Recovered/Not Resolved]
  - Post herpetic neuralgia [Not Recovered/Not Resolved]
  - Liver disorder [Unknown]
  - Rectal prolapse [Unknown]
  - Surgery [Unknown]
  - Ill-defined disorder [Not Recovered/Not Resolved]
